FAERS Safety Report 7154672 (Version 18)
Quarter: 2013Q3

REPORT INFORMATION
  Report Type: Spontaneous
  Country: US (occurrence: US)
  Receive Date: 20091021
  Receipt Date: 20130925
  Transmission Date: 20140515
  Serious: Yes (Death, Hospitalization, Other)
  Sender: FDA-Public Use
  Company Number: PHEH2009US13749

PATIENT
  Sex: Male
  Weight: 98.87 kg

DRUGS (3)
  1. ZOMETA [Suspect]
     Indication: PROSTATE CANCER METASTATIC
     Route: 042
     Dates: start: 200103, end: 200808
  2. AREDIA [Suspect]
     Route: 042
     Dates: start: 20000731
  3. TAXOTERE [Concomitant]

REACTIONS (95)
  - Death [Fatal]
  - Spinal osteoarthritis [Unknown]
  - Vascular calcification [Unknown]
  - Metastases to spine [Unknown]
  - Metastases to bone [Unknown]
  - Osteonecrosis of jaw [Recovered/Resolved]
  - General physical health deterioration [Unknown]
  - Pain [Unknown]
  - Anxiety [Unknown]
  - Anhedonia [Unknown]
  - Periodontitis [Unknown]
  - Bone lesion [Unknown]
  - Bone disorder [Unknown]
  - Pathological fracture [Unknown]
  - Tooth loss [Unknown]
  - Tooth abscess [Unknown]
  - Exposed bone in jaw [Unknown]
  - Pancytopenia [Unknown]
  - Arteriosclerosis coronary artery [Unknown]
  - Osteomyelitis [Unknown]
  - Cataract [Unknown]
  - Renal failure chronic [Unknown]
  - Myopathy [Unknown]
  - Dyspnoea [Unknown]
  - Haematuria [Unknown]
  - Cystitis [Unknown]
  - Bladder cancer [Unknown]
  - Second primary malignancy [Unknown]
  - Dehydration [Unknown]
  - Spinal cord compression [Unknown]
  - Inflammation [Unknown]
  - Excessive granulation tissue [Unknown]
  - Tachycardia [Unknown]
  - Upper limb fracture [Unknown]
  - Fracture [Unknown]
  - Hyperlipidaemia [Unknown]
  - Gastritis erosive [Unknown]
  - Oesophageal candidiasis [Unknown]
  - Back pain [Unknown]
  - Muscular weakness [Unknown]
  - Neoplasm progression [Unknown]
  - Malignant neoplasm progression [Unknown]
  - Pleural effusion [Unknown]
  - Sepsis [Unknown]
  - Atrial fibrillation [Unknown]
  - Cholecystitis acute [Unknown]
  - Anaemia [Unknown]
  - Pneumonia [Unknown]
  - Cardiac failure congestive [Unknown]
  - Gastrooesophageal reflux disease [Unknown]
  - Urinary tract infection [Unknown]
  - Febrile neutropenia [Unknown]
  - Hypoxia [Unknown]
  - Respiratory failure [Unknown]
  - Left ventricular hypertrophy [Unknown]
  - Gouty arthritis [Unknown]
  - Cholelithiasis [Unknown]
  - Myelopathy [Unknown]
  - Thrombocytopenia [Unknown]
  - Hypotension [Unknown]
  - Functional gastrointestinal disorder [Unknown]
  - Decubitus ulcer [Recovered/Resolved]
  - Chronic obstructive pulmonary disease [Unknown]
  - Asthma [Unknown]
  - Emphysema [Unknown]
  - Bronchitis [Unknown]
  - Hepatic steatosis [Unknown]
  - Osteosclerosis [Unknown]
  - Sinusitis [Unknown]
  - Mitral valve incompetence [Unknown]
  - Tricuspid valve incompetence [Unknown]
  - Pulmonary hypertension [Unknown]
  - Neuropathy peripheral [Unknown]
  - Chondrocalcinosis [Unknown]
  - Osteoporosis [Unknown]
  - Peroneal nerve palsy [Unknown]
  - Neurogenic bladder [Unknown]
  - Aortic stenosis [Unknown]
  - Dysphagia [Unknown]
  - Odynophagia [Unknown]
  - Prostatic haemorrhage [Unknown]
  - Hiatus hernia [Unknown]
  - Urinary retention [Unknown]
  - Cardiac murmur [Unknown]
  - Intervertebral disc space narrowing [Unknown]
  - Lordosis [Unknown]
  - Pancreatic atrophy [Unknown]
  - Osteoarthritis [Unknown]
  - Pulmonary mass [Unknown]
  - Lung infiltration [Unknown]
  - Aortic valve sclerosis [Unknown]
  - Aortic valve calcification [Unknown]
  - Arrhythmia [Unknown]
  - Contusion [Unknown]
  - Face oedema [Unknown]
